FAERS Safety Report 4923293-0 (Version None)
Quarter: 2006Q1

REPORT INFORMATION
  Report Type: 
  Country: None (occurrence: None)
  Receive Date: 20060223
  Receipt Date: 20060223
  Transmission Date: 20060701
  Serious: Yes (Other)
  Sender: FDA-Public Use
  Company Number: None

PATIENT
  Sex: Female
  Weight: 72 kg

DRUGS (2)
  1. FILGRASTIM [Suspect]
     Indication: BLOOD STEM CELL HARVEST
     Dosage: 600MCG ONCE SQ
     Route: 058
     Dates: start: 20060216, end: 20060216
  2. DEPO-PROVERA [Concomitant]

REACTIONS (13)
  - ANXIETY [None]
  - BACK PAIN [None]
  - BLOOD PRESSURE ORTHOSTATIC ABNORMAL [None]
  - DIZZINESS [None]
  - DYSPNOEA [None]
  - HAEMATOCRIT DECREASED [None]
  - HYPOAESTHESIA [None]
  - LABORATORY TEST INTERFERENCE [None]
  - NAUSEA [None]
  - NECK PAIN [None]
  - NEUROLOGICAL SYMPTOM [None]
  - PARAESTHESIA [None]
  - WHITE BLOOD CELL COUNT INCREASED [None]
